FAERS Safety Report 6931691-9 (Version None)
Quarter: 2010Q3

REPORT INFORMATION
  Report Type: 
  Country: None (occurrence: None)
  Receive Date: 20100819
  Receipt Date: 20100807
  Transmission Date: 20110219
  Serious: Yes (Other)
  Sender: FDA-Public Use
  Company Number: US-PFIZER INC-2010100077

PATIENT
  Sex: Male
  Weight: 122 kg

DRUGS (9)
  1. LYRICA [Suspect]
     Indication: FIBROMYALGIA
     Dosage: 150 MG, 2X/DAY
     Route: 048
     Dates: start: 20090101, end: 20090101
  2. LYRICA [Suspect]
     Dosage: 300 MG, 2X/DAY
     Route: 048
     Dates: start: 20090101
  3. CLONIDINE [Concomitant]
     Indication: HYPERTENSION
     Dosage: UNK
  4. AVAPRO [Concomitant]
     Indication: HYPERTENSION
     Dosage: UNK
  5. COREG [Concomitant]
     Indication: HYPERTENSION
     Dosage: UNK
  6. CRESTOR [Concomitant]
     Indication: BLOOD CHOLESTEROL INCREASED
     Dosage: UNK
  7. LANTUS [Concomitant]
     Indication: DIABETES MELLITUS
     Dosage: UNK
  8. INSULIN GLULISINE [Concomitant]
     Indication: DIABETES MELLITUS
     Dosage: UNK
  9. GLUCOPHAGE [Concomitant]
     Indication: DIABETES MELLITUS
     Dosage: UNK

REACTIONS (1)
  - WEIGHT INCREASED [None]
